FAERS Safety Report 13964538 (Version 1)
Quarter: 2017Q3

REPORT INFORMATION
  Report Type: Spontaneous
  Country: DE (occurrence: DE)
  Receive Date: 20170913
  Receipt Date: 20170913
  Transmission Date: 20171128
  Serious: Yes (Hospitalization, Other)
  Sender: FDA-Public Use
  Company Number: DE-AMGEN-DEUSP2017137142

PATIENT
  Age: 79 Year
  Sex: Male

DRUGS (12)
  1. RITUXIMAB. [Suspect]
     Active Substance: RITUXIMAB
     Dosage: 818 MG, 1 IN 1 CYCLICAL
     Route: 042
     Dates: start: 20141125, end: 20141125
  2. VINCRISTINE [Suspect]
     Active Substance: VINCRISTINE
     Dosage: 1 MG, 1 IN 1 CYCLICAL
     Route: 042
     Dates: start: 20141125, end: 20141125
  3. CYCLOPHOSPHAMIDE. [Suspect]
     Active Substance: CYCLOPHOSPHAMIDE
     Indication: B-CELL LYMPHOMA
     Dosage: 1643 MG, 1 IN 1 CYCLICAL
     Route: 042
     Dates: start: 20141111, end: 20141111
  4. PREDNISOLONE. [Suspect]
     Active Substance: PREDNISOLONE
     Indication: B-CELL LYMPHOMA
     Dosage: 100 MG, 5 IN 1 CYCLICAL
     Route: 048
     Dates: start: 20141111, end: 20141115
  5. DOXORUBICIN [Suspect]
     Active Substance: DOXORUBICIN
     Indication: B-CELL LYMPHOMA
     Dosage: 110 MG, 1 IN 1 CYCLICAL
     Route: 042
     Dates: start: 20141111, end: 20141111
  6. DOXORUBICIN [Suspect]
     Active Substance: DOXORUBICIN
     Dosage: 109 MG, 1 IN 1 CYCLICAL
     Route: 042
     Dates: start: 20141125, end: 20141125
  7. RITUXIMAB. [Suspect]
     Active Substance: RITUXIMAB
     Indication: B-CELL LYMPHOMA
     Dosage: 821 MG, 1 IN 1 CYCLICAL
     Route: 042
     Dates: start: 20141111, end: 20141111
  8. PEGFILGRASTIM [Suspect]
     Active Substance: PEGFILGRASTIM
     Dosage: 6 MG, 1 IN 1 CYCLICAL
     Route: 058
     Dates: start: 20141128, end: 20141128
  9. PREDNISOLONE. [Suspect]
     Active Substance: PREDNISOLONE
     Dosage: 100 MG, 5 IN 1 CYCLICAL
     Route: 048
     Dates: start: 20141125, end: 20141129
  10. VINCRISTINE [Suspect]
     Active Substance: VINCRISTINE
     Indication: B-CELL LYMPHOMA
     Dosage: 1 MG, 1 IN 1 CYCLICAL
     Route: 042
     Dates: start: 20141111, end: 20141111
  11. CYCLOPHOSPHAMIDE. [Suspect]
     Active Substance: CYCLOPHOSPHAMIDE
     Dosage: 1635 MG, 1 IN 1 CYCLICAL
     Route: 042
     Dates: start: 20141125, end: 20141125
  12. PEGFILGRASTIM [Suspect]
     Active Substance: PEGFILGRASTIM
     Indication: B-CELL LYMPHOMA
     Dosage: 6 MG, 1 IN 1 CYCLICAL
     Route: 058
     Dates: start: 20141114, end: 20141114

REACTIONS (5)
  - Pulmonary embolism [Unknown]
  - Cardiac failure [Recovered/Resolved]
  - Febrile neutropenia [Unknown]
  - Dyspnoea [Recovered/Resolved]
  - Febrile neutropenia [Recovered/Resolved]

NARRATIVE: CASE EVENT DATE: 20141116
